FAERS Safety Report 18945324 (Version 2)
Quarter: 2021Q1

REPORT INFORMATION
  Report Type: Report from Study
  Country: CH (occurrence: CH)
  Receive Date: 20210226
  Receipt Date: 20210305
  Transmission Date: 20210420
  Serious: Yes (Life-Threatening, Hospitalization)
  Sender: FDA-Public Use
  Company Number: NVSC2021CH038421

PATIENT
  Age: 66 Year
  Sex: Female

DRUGS (14)
  1. HEPARIN [Concomitant]
     Active Substance: HEPARIN SODIUM
     Indication: PRODUCT USED FOR UNKNOWN INDICATION
     Dosage: 25000 IE/5ML AMP. (4X/D WITH EACH 12^500 IE)
     Route: 055
     Dates: start: 20201210
  2. MAGNESIUM [Concomitant]
     Active Substance: MAGNESIUM
     Indication: PRODUCT USED FOR UNKNOWN INDICATION
     Dosage: 5 MMOL, BID (1?0?1?0) PER SONDE
     Route: 065
  3. PRUCALOPRIDE [Concomitant]
     Active Substance: PRUCALOPRIDE
     Indication: PRODUCT USED FOR UNKNOWN INDICATION
     Dosage: 2 MG, TID (1?1?0?1) PER SONDE
     Route: 065
  4. PLACEBO [Suspect]
     Active Substance: UNSPECIFIED INGREDIENT
     Indication: TYPE 2 DIABETES MELLITUS
  5. DEXAMETHASONE. [Concomitant]
     Active Substance: DEXAMETHASONE
     Indication: INFLAMMATION
     Dosage: 6 MG, QD (1?0?0?0)
     Route: 042
     Dates: start: 20201210, end: 20210104
  6. PANTOPRAZOL [Concomitant]
     Active Substance: PANTOPRAZOLE SODIUM
     Indication: PRODUCT USED FOR UNKNOWN INDICATION
     Dosage: 40 MG, QD (1?0?0?0)
     Route: 042
     Dates: start: 20201210
  7. METOCLOPRAMID [Concomitant]
     Active Substance: METOCLOPRAMIDE
     Indication: PRODUCT USED FOR UNKNOWN INDICATION
     Dosage: 10MG/2ML, (1?1?1?1)
     Route: 042
  8. BLINDED NO TREATMENT RECEIVED [Suspect]
     Active Substance: INVESTIGATIONAL PRODUCT
     Indication: COVID-19
     Dosage: CODE NOT BROKEN
     Route: 042
     Dates: start: 20201211, end: 20201211
  9. BLINDED NO TREATMENT RECEIVED [Suspect]
     Active Substance: INVESTIGATIONAL PRODUCT
     Indication: TYPE 2 DIABETES MELLITUS
  10. BLINDED ACZ885 [Suspect]
     Active Substance: CANAKINUMAB
     Indication: COVID-19
     Dosage: CODE NOT BROKEN
     Route: 042
     Dates: start: 20201211, end: 20201211
  11. NIFEDIPIN [Concomitant]
     Active Substance: NIFEDIPINE
     Indication: PRODUCT USED FOR UNKNOWN INDICATION
     Dosage: 20 MG, QD (1?0?0) PER SONDE
     Route: 065
  12. NALOXEN [Concomitant]
     Active Substance: NAPROXEN SODIUM
     Indication: PRODUCT USED FOR UNKNOWN INDICATION
     Dosage: 0.4 MG/ML PERFUSOR (1?1?1?0)
     Route: 065
  13. PLACEBO [Suspect]
     Active Substance: UNSPECIFIED INGREDIENT
     Indication: COVID-19
     Dosage: CODE NOT BROKEN
     Route: 042
     Dates: start: 20201211, end: 20201211
  14. BLINDED ACZ885 [Suspect]
     Active Substance: CANAKINUMAB
     Indication: TYPE 2 DIABETES MELLITUS

REACTIONS (1)
  - Acute respiratory distress syndrome [Recovered/Resolved]

NARRATIVE: CASE EVENT DATE: 20201215
